FAERS Safety Report 5946009-8 (Version None)
Quarter: 2008Q4

REPORT INFORMATION
  Report Type: 
  Country: None (occurrence: None)
  Receive Date: 20081106
  Receipt Date: 20081024
  Transmission Date: 20090506
  Serious: Yes (Other)
  Sender: FDA-Public Use
  Company Number: 2008001006

PATIENT
  Age: 60 Year
  Sex: Female

DRUGS (8)
  1. ERLOTINIB (ERLOTINIB HCL) (TABLET)(ERLOTINIB [Suspect]
     Indication: LUNG ADENOCARCINOMA
     Dosage: (150 MG,QD), ORAL
     Route: 048
     Dates: start: 20080215
  2. DEPAS (ETIZOLAM) [Concomitant]
  3. DECADRON [Concomitant]
  4. CLONAZEPAM [Concomitant]
  5. MAGNESIUM OXIDE (MAGNESIUM OXIDE) [Concomitant]
  6. LAXOBERON (SODIUM PICOSULFATE) [Concomitant]
  7. HYALEIN (HYALURONATE SODIUM) [Concomitant]
  8. SODIUM BICARBONATE IN PLASTIC CONTAINER [Concomitant]

REACTIONS (13)
  - ANOREXIA [None]
  - COUGH [None]
  - DIARRHOEA [None]
  - DRY EYE [None]
  - DRY MOUTH [None]
  - DYSGEUSIA [None]
  - DYSPEPSIA [None]
  - METASTASES TO CENTRAL NERVOUS SYSTEM [None]
  - NAUSEA [None]
  - RASH [None]
  - REFLUX OESOPHAGITIS [None]
  - SJOGREN'S SYNDROME [None]
  - SKIN REACTION [None]
